FAERS Safety Report 7432385-6 (Version None)
Quarter: 2011Q2

REPORT INFORMATION
  Report Type: 
  Country: None (occurrence: None)
  Receive Date: 20110422
  Receipt Date: 20110412
  Transmission Date: 20111010
  Serious: Yes (Other)
  Sender: FDA-Public Use
  Company Number: PHHY2011US29539

PATIENT
  Sex: Male

DRUGS (21)
  1. OMEPRAZOLE [Concomitant]
  2. FOLIC ACID [Concomitant]
  3. LOMOTIL [Concomitant]
  4. ALBUTEROL [Concomitant]
  5. AMBIEN [Concomitant]
  6. EXJADE [Suspect]
     Indication: SICKLE CELL ANAEMIA
     Dosage: 2000 MG, QD
     Route: 048
     Dates: start: 20060509
  7. MORPHINE [Concomitant]
  8. HYDREA [Concomitant]
  9. VALIUM [Concomitant]
  10. CARDURA [Concomitant]
  11. COUMADIN [Concomitant]
  12. MUCINEX [Concomitant]
  13. MIRALAX [Concomitant]
  14. TRICOR [Concomitant]
  15. DILAUDID [Concomitant]
     Dosage: 4 MG, UNK
  16. PREDNISONE [Concomitant]
  17. ASPIRIN [Concomitant]
  18. BLOOD TRANSFUSION, AUXILIARY PRODUCTS [Concomitant]
     Indication: SICKLE CELL ANAEMIA
  19. ATIVAN [Concomitant]
     Dosage: 0.5 MG, UNK
  20. METHADONE [Concomitant]
  21. VALIUM [Concomitant]

REACTIONS (11)
  - LYMPHADENOPATHY MEDIASTINAL [None]
  - BLOOD GLUCOSE INCREASED [None]
  - ALANINE AMINOTRANSFERASE INCREASED [None]
  - SARCOIDOSIS [None]
  - BLOOD CREATININE INCREASED [None]
  - BLOOD UREA INCREASED [None]
  - ASPARTATE AMINOTRANSFERASE INCREASED [None]
  - SICKLE CELL ANAEMIA WITH CRISIS [None]
  - BLOOD BILIRUBIN INCREASED [None]
  - THROMBOSIS [None]
  - PAIN [None]
